FAERS Safety Report 5275522-4 (Version None)
Quarter: 2007Q1

REPORT INFORMATION
  Report Type: 
  Country: None (occurrence: None)
  Receive Date: 20061213
  Receipt Date: 20051013
  Transmission Date: 20070707
  Serious: Yes (Disabling)
  Sender: FDA-Public Use
  Company Number: 2005UW15425

PATIENT
  Sex: Female

DRUGS (3)
  1. SEROQUEL [Suspect]
     Dates: start: 20011101, end: 20040601
  2. RISPERDAL [Suspect]
     Dates: start: 20011101, end: 20040601
  3. ZYPREXA [Suspect]
     Dates: start: 20011101, end: 20040601

REACTIONS (1)
  - DIABETES MELLITUS [None]
